FAERS Safety Report 12186209 (Version 1)
Quarter: 2016Q1

REPORT INFORMATION
  Report Type: Spontaneous
  Country: US (occurrence: US)
  Receive Date: 20160317
  Receipt Date: 20160317
  Transmission Date: 20160526
  Serious: No
  Sender: FDA-Public Use
  Company Number: US-AUROBINDO-AUR-APU-2015-05191

PATIENT
  Sex: Male

DRUGS (1)
  1. GABAPENTIN CAPSULES 300 MG [Suspect]
     Active Substance: GABAPENTIN
     Indication: PAIN
     Dosage: UNK, ONCE A DAY
     Route: 048
     Dates: start: 20150616

REACTIONS (3)
  - Paraesthesia [Unknown]
  - Dysgeusia [Unknown]
  - Product quality issue [Unknown]
